FAERS Safety Report 6349753-6 (Version None)
Quarter: 2009Q3

REPORT INFORMATION
  Report Type: 
  Country: None (occurrence: None)
  Receive Date: 20090911
  Receipt Date: 20090908
  Transmission Date: 20100115
  Serious: Yes (Death, Hospitalization)
  Sender: FDA-Public Use
  Company Number: PHHY2009BR38394

PATIENT
  Sex: Female

DRUGS (4)
  1. EXELON [Suspect]
     Indication: DEMENTIA ALZHEIMER'S TYPE
     Dosage: 4 MG, BID (4MG IN THE MORNING AND 4 MG IN THE AFTERNOON)
     Route: 048
  2. EXELON [Suspect]
     Dosage: UNK
     Route: 048
     Dates: start: 20050101
  3. ARTANE [Concomitant]
     Indication: DEMENTIA ALZHEIMER'S TYPE
     Dosage: 2MG IN THE MORNING AND 5MG IN THE AFTERNOON
     Route: 048
     Dates: start: 20050101, end: 20090812
  4. MANIDIPINE HYDROCHLORIDE [Concomitant]
     Indication: RENAL DISORDER
     Dosage: 10 MG, UNK
     Dates: start: 19990101, end: 20090812

REACTIONS (9)
  - ANAEMIA [None]
  - ASTHENIA [None]
  - DEHYDRATION [None]
  - DYSPHAGIA [None]
  - DYSPNOEA [None]
  - EATING DISORDER [None]
  - FATIGUE [None]
  - LACK OF SPONTANEOUS SPEECH [None]
  - PNEUMONIA ASPIRATION [None]
